FAERS Safety Report 11514004 (Version 1)
Quarter: 2015Q3

REPORT INFORMATION
  Report Type: Spontaneous
  Country: GB (occurrence: GB)
  Receive Date: 20150916
  Receipt Date: 20150916
  Transmission Date: 20151125
  Serious: Yes (Hospitalization)
  Sender: FDA-Public Use
  Company Number: PHHY2015GB107923

PATIENT
  Age: 87 Year
  Sex: Male
  Weight: 67 kg

DRUGS (6)
  1. BISOPROLOL [Concomitant]
     Active Substance: BISOPROLOL
     Indication: CARDIAC FAILURE CONGESTIVE
     Dosage: 3.75 MG, UNK, ONGOING
     Route: 048
     Dates: start: 201004
  2. GOSERELIN [Concomitant]
     Active Substance: GOSERELIN
     Indication: PROSTATE CANCER
     Dosage: 10.8 MG, UNK
     Route: 058
     Dates: start: 20150703
  3. SIMVASTATIN. [Suspect]
     Active Substance: SIMVASTATIN
     Indication: HYPERCHOLESTEROLAEMIA
     Dosage: 40 MG, UNK
     Route: 048
     Dates: start: 201004
  4. WARFARIN [Concomitant]
     Active Substance: WARFARIN
     Indication: ATRIAL FIBRILLATION
     Route: 048
     Dates: start: 201005
  5. CYPROTERONE ACETATE [Suspect]
     Active Substance: CYPROTERONE ACETATE
     Indication: PROSTATE CANCER
     Dosage: 100 MG, TID
     Route: 048
     Dates: start: 20150727, end: 20150731
  6. LISINOPRIL. [Concomitant]
     Active Substance: LISINOPRIL
     Indication: HYPERTENSION
     Dosage: 10 MG, UNK
     Route: 048
     Dates: start: 20111008

REACTIONS (3)
  - Blood creatine phosphokinase increased [Not Recovered/Not Resolved]
  - Rhabdomyolysis [Not Recovered/Not Resolved]
  - Inhibitory drug interaction [Unknown]

NARRATIVE: CASE EVENT DATE: 20150729
